FAERS Safety Report 5793644-6 (Version None)
Quarter: 2008Q2

REPORT INFORMATION
  Report Type: 
  Country: None (occurrence: None)
  Receive Date: 20080627
  Receipt Date: 20080613
  Transmission Date: 20081010
  Serious: Yes (Hospitalization)
  Sender: FDA-Public Use
  Company Number: DE-JNJFOC-20080603293

PATIENT
  Age: 42 Year
  Sex: Male

DRUGS (8)
  1. RISPERDAL [Suspect]
     Indication: DRUG USE FOR UNKNOWN INDICATION
     Route: 048
  2. SALOFALK [Concomitant]
     Route: 048
  3. SALOFALK [Concomitant]
     Route: 048
  4. PANTOPRAZOLE SODIUM [Concomitant]
     Route: 048
  5. KALINOR [Concomitant]
     Route: 048
  6. CLARITHROMYCIN [Concomitant]
     Route: 048
  7. AMOXICILLIN [Concomitant]
     Route: 048
  8. BUDENOFALK [Concomitant]
     Route: 048

REACTIONS (1)
  - PLEUROTHOTONUS [None]
